FAERS Safety Report 4957853-8 (Version None)
Quarter: 2006Q1

REPORT INFORMATION
  Report Type: 
  Country: None (occurrence: None)
  Receive Date: 20060330
  Receipt Date: 20060321
  Transmission Date: 20060701
  Serious: Yes (Hospitalization)
  Sender: FDA-Public Use
  Company Number: 2006UW04781

PATIENT
  Age: 65 Year
  Sex: Female
  Weight: 41 kg

DRUGS (2)
  1. ANASTROZOLE [Suspect]
     Indication: BREAST CANCER METASTATIC
     Route: 048
     Dates: start: 20060216
  2. LONAFARNIB OR PLACEBO [Concomitant]
     Indication: BREAST CANCER METASTATIC
     Route: 048
     Dates: start: 20060216

REACTIONS (7)
  - ABDOMINAL PAIN UPPER [None]
  - DIARRHOEA [None]
  - DYSPNOEA [None]
  - HEADACHE [None]
  - PLEURAL EFFUSION [None]
  - SOMNOLENCE [None]
  - TACHYCARDIA [None]
